FAERS Safety Report 22038724 (Version 1)
Quarter: 2023Q1

REPORT INFORMATION
  Report Type: Spontaneous
  Country: BR (occurrence: BR)
  Receive Date: 20230227
  Receipt Date: 20230227
  Transmission Date: 20230417
  Serious: Yes (Other)
  Sender: FDA-Public Use
  Company Number: BR-TAKEDA-2023TUS018843

PATIENT
  Sex: Female
  Weight: 100 kg

DRUGS (2)
  1. LISDEXAMFETAMINE DIMESYLATE [Suspect]
     Active Substance: LISDEXAMFETAMINE DIMESYLATE
     Indication: Attention deficit hyperactivity disorder
     Dosage: UNK
     Route: 065
  2. LISDEXAMFETAMINE DIMESYLATE [Suspect]
     Active Substance: LISDEXAMFETAMINE DIMESYLATE
     Dosage: 1 DOSAGE FORM, QD
     Route: 048

REACTIONS (5)
  - Hypothyroidism [Unknown]
  - Drug ineffective [Unknown]
  - Taste disorder [Unknown]
  - Somnolence [Unknown]
  - Decreased appetite [Unknown]
